FAERS Safety Report 5646785-8 (Version None)
Quarter: 2008Q1

REPORT INFORMATION
  Report Type: 
  Country: None (occurrence: None)
  Receive Date: 20080303
  Receipt Date: 20080225
  Transmission Date: 20080703
  Serious: Yes (Life-Threatening, Other)
  Sender: FDA-Public Use
  Company Number: ES-AVENTIS-200810913EU

PATIENT
  Age: 88 Year
  Sex: Female

DRUGS (6)
  1. SEGURIL                            /00032601/ [Suspect]
     Indication: DRUG USE FOR UNKNOWN INDICATION
     Dates: end: 20070906
  2. DIGOXIN [Suspect]
     Indication: ATRIAL FIBRILLATION
     Dosage: DOSE QUANTITY: 0.25
     Route: 048
     Dates: end: 20070906
  3. ENALAPRIL MALEATE [Suspect]
     Indication: HYPERTENSION
     Route: 048
     Dates: end: 20070701
  4. TROMALYT [Suspect]
     Route: 048
     Dates: start: 20020101
  5. OMEPRAZOLE [Concomitant]
     Route: 048
     Dates: start: 20030101
  6. MINITRAN 10 [Concomitant]
     Dates: start: 20020101, end: 20070906

REACTIONS (3)
  - DRUG INTERACTION [None]
  - RENAL FAILURE ACUTE [None]
  - THERAPEUTIC AGENT TOXICITY [None]
